FAERS Safety Report 23507174 (Version 1)
Quarter: 2024Q1

REPORT INFORMATION
  Report Type: Spontaneous
  Country: US (occurrence: US)
  Receive Date: 20240209
  Receipt Date: 20240209
  Transmission Date: 20240410
  Serious: Yes (Other)
  Sender: FDA-Public Use
  Company Number: US-PFIZER INC-PV202400018095

PATIENT
  Age: 76 Year
  Sex: Female

DRUGS (4)
  1. LINEZOLID [Suspect]
     Active Substance: LINEZOLID
     Indication: Mycobacterium abscessus infection
     Dosage: 600 MG ONCE DAILY
  2. ARIKAYCE [Suspect]
     Active Substance: AMIKACIN
     Indication: Mycobacterium abscessus infection
     Dosage: 590 MG, DAILY
  3. IMIPENEM [Suspect]
     Active Substance: IMIPENEM
     Indication: Mycobacterium abscessus infection
     Dosage: UNK
     Route: 042
     Dates: start: 20230905, end: 20231211
  4. OMADACYCLINE [Suspect]
     Active Substance: OMADACYCLINE
     Indication: Mycobacterium abscessus infection
     Dosage: 300MG ONCE DAILY

REACTIONS (2)
  - Drug ineffective for unapproved indication [Unknown]
  - Off label use [Unknown]
